FAERS Safety Report 8553897-8 (Version None)
Quarter: 2012Q3

REPORT INFORMATION
  Report Type: 
  Country: None (occurrence: None)
  Receive Date: 20120731
  Receipt Date: 20120723
  Transmission Date: 20120928
  Serious: Yes (Other)
  Sender: FDA-Public Use
  Company Number: JP-VERTEX PHARMACEUTICALS INC.-AE-2012-009543

PATIENT
  Age: 51 Year
  Sex: Male

DRUGS (4)
  1. PEG-INTRON [Concomitant]
     Indication: HEPATITIS C
     Route: 058
     Dates: end: 20120615
  2. REBETOL [Concomitant]
     Indication: HEPATITIS C
     Route: 048
     Dates: end: 20120619
  3. ALLOPURINOL [Concomitant]
     Indication: HYPERURICAEMIA
     Route: 048
     Dates: start: 20120518, end: 20120619
  4. TELAVIC (TELAPREVIR) [Suspect]
     Indication: HEPATITIS C
     Route: 048
     Dates: start: 20120420, end: 20120619

REACTIONS (2)
  - SKIN DISORDER [None]
  - DRUG ERUPTION [None]
